FAERS Safety Report 7547299-0 (Version None)
Quarter: 2011Q2

REPORT INFORMATION
  Report Type: 
  Country: None (occurrence: None)
  Receive Date: 20110614
  Receipt Date: 20090606
  Transmission Date: 20111010
  Serious: Yes (Death)
  Sender: FDA-Public Use
  Company Number: US-BAYER-200922418NA

PATIENT
  Age: 49 Year
  Sex: Male
  Weight: 211 kg

DRUGS (13)
  1. TRASYLOL [Suspect]
     Indication: IMPLANTABLE DEFIBRILLATOR INSERTION
  2. ZOCOR [Concomitant]
     Dosage: 40 MG, HS
     Route: 048
  3. HUMALOG [Concomitant]
     Dosage: SLIDING SCALE
  4. TRASYLOL [Suspect]
     Indication: CARDIAC OPERATION
     Dosage: UNK
     Dates: start: 20080312
  5. BENADRYL [Concomitant]
     Dosage: 50MG
     Route: 042
     Dates: start: 20080312
  6. COUMADIN [Concomitant]
     Indication: ANTICOAGULANT THERAPY
     Dosage: 5 MG, QD
     Route: 048
     Dates: start: 20080326
  7. ACETYLSALICYLIC ACID SRT [Concomitant]
     Dosage: 81 MG, QD
     Route: 048
  8. CRESTOR [Concomitant]
     Dosage: 10 MG, QD
     Route: 048
  9. FENTANYL [Concomitant]
     Dosage: UNK
     Dates: start: 20080312
  10. LANOXIN [Concomitant]
     Dosage: 0.125 MG, QD
     Route: 048
  11. HEPARIN [Concomitant]
     Dosage: 1,000U/ML
     Route: 042
     Dates: start: 20080312
  12. AMIODARONE HCL [Concomitant]
     Dosage: 200 MG, BID
     Route: 048
  13. VANCOMYCIN [Concomitant]
     Dosage: 1GM
     Route: 042
     Dates: start: 20080312

REACTIONS (4)
  - UNEVALUABLE EVENT [None]
  - INJURY [None]
  - DEATH [None]
  - GENERAL PHYSICAL HEALTH DETERIORATION [None]
